FAERS Safety Report 6714542-7 (Version None)
Quarter: 2010Q2

REPORT INFORMATION
  Report Type: 
  Country: None (occurrence: None)
  Receive Date: 20100506
  Receipt Date: 20100427
  Transmission Date: 20101027
  Serious: Yes (Hospitalization, Other)
  Sender: FDA-Public Use
  Company Number: US-WATSON-2010-05796

PATIENT
  Age: 37 Year
  Sex: Male

DRUGS (1)
  1. SULFAMETHOXAZOLE/TRIMETHOPRIM 800/160 (WATSON LABORATORIES) [Suspect]
     Indication: URINARY TRACT INFECTION
     Dosage: 800/160 MG, Q12H
     Route: 048

REACTIONS (4)
  - HAEMOLYTIC ANAEMIA [None]
  - HEPATITIS [None]
  - MENINGITIS ASEPTIC [None]
  - ORTHOSTATIC HYPOTENSION [None]
